APPROVED DRUG PRODUCT: PREGABALIN
Active Ingredient: PREGABALIN
Strength: 300MG
Dosage Form/Route: CAPSULE;ORAL
Application: A091157 | Product #008
Applicant: SUN PHARMACEUTICAL INDUSTRIES LTD
Approved: Nov 29, 2019 | RLD: No | RS: No | Type: DISCN